FAERS Safety Report 8988272 (Version 1)
Quarter: 2012Q4

REPORT INFORMATION
  Report Type: 
  Country: US (occurrence: US)
  Receive Date: 20121227
  Receipt Date: 20121227
  Transmission Date: 20130627
  Serious: Yes (Other)
  Sender: FDA-Public Use
  Company Number: US-ASTELLAS-2012US012128

PATIENT
  Age: 40 Year
  Sex: Female

DRUGS (1)
  1. AMBISOME [Suspect]
     Indication: CANDIDA SEPSIS
     Dosage: 200 mg, Unknown/D
     Route: 042
     Dates: start: 20121205

REACTIONS (4)
  - Metamorphopsia [Unknown]
  - Anaphylactic reaction [Recovered/Resolved]
  - Alopecia [Unknown]
  - Headache [Unknown]
